FAERS Safety Report 4417241-X (Version None)
Quarter: 2004Q3

REPORT INFORMATION
  Report Type: 
  Country: None (occurrence: None)
  Receive Date: 20040806
  Receipt Date: 20030911
  Transmission Date: 20050211
  Serious: Yes (Death, Hospitalization)
  Sender: FDA-Public Use
  Company Number: US-GLAXOSMITHKLINE-A0425521A

PATIENT
  Age: 13 Year
  Sex: Male
  Weight: 52.3 kg

DRUGS (3)
  1. ADVAIR DISKUS 100/50 [Suspect]
     Indication: ASTHMA
     Dosage: 1PUFF TWICE PER DAY
     Route: 055
     Dates: start: 20030318, end: 20030909
  2. SINGULAIR [Concomitant]
  3. ALBUTEROL [Suspect]

REACTIONS (14)
  - ASPIRATION [None]
  - ASTHMA [None]
  - BRONCHIAL OBSTRUCTION [None]
  - BRONCHITIS CHRONIC [None]
  - CARDIAC ARREST [None]
  - DEPRESSED LEVEL OF CONSCIOUSNESS [None]
  - EOSINOPHILIA [None]
  - FOREIGN BODY ASPIRATION [None]
  - HEPATIC CONGESTION [None]
  - HYPERTROPHY [None]
  - PNEUMONIA [None]
  - RENAL DISORDER [None]
  - RESPIRATORY DISORDER [None]
  - SPLEEN CONGESTION [None]
